FAERS Safety Report 8059896-7 (Version None)
Quarter: 2012Q1

REPORT INFORMATION
  Report Type: 
  Country: None (occurrence: None)
  Receive Date: 20120120
  Receipt Date: 20120117
  Transmission Date: 20120608
  Serious: Yes (Other)
  Sender: FDA-Public Use
  Company Number: US-JNJFOC-20120107522

PATIENT
  Sex: Female

DRUGS (2)
  1. BENADRYL [Suspect]
     Route: 048
  2. BENADRYL [Suspect]
     Indication: SLEEP DISORDER THERAPY
     Dosage: TWO TABLETS
     Route: 048

REACTIONS (2)
  - DYSPHEMIA [None]
  - SPEECH DISORDER [None]
